FAERS Safety Report 18394253 (Version 1)
Quarter: 2020Q4

REPORT INFORMATION
  Report Type: Spontaneous
  Country: SE (occurrence: SE)
  Receive Date: 20201016
  Receipt Date: 20201016
  Transmission Date: 20210114
  Serious: Yes (Hospitalization)
  Sender: FDA-Public Use
  Company Number: SE-JNJFOC-20201019238

PATIENT
  Age: 35 Year
  Sex: Male

DRUGS (1)
  1. IPREN TABLETS [Suspect]
     Active Substance: IBUPROFEN
     Indication: TENDON PAIN
     Route: 048
     Dates: start: 20200824, end: 20200828

REACTIONS (1)
  - Tubulointerstitial nephritis [Recovered/Resolved]

NARRATIVE: CASE EVENT DATE: 20200902
